FAERS Safety Report 4618562-8 (Version None)
Quarter: 2005Q1

REPORT INFORMATION
  Report Type: 
  Country: None (occurrence: None)
  Receive Date: 20050324
  Receipt Date: 20050309
  Transmission Date: 20050727
  Serious: Yes (Other)
  Sender: FDA-Public Use
  Company Number: USA050392822

PATIENT
  Age: 60 Year
  Sex: Female

DRUGS (2)
  1. EVISTA [Suspect]
     Indication: OSTEOPOROSIS
     Dates: start: 20031101
  2. PREMARIN [Concomitant]

REACTIONS (5)
  - HEPATIC CIRRHOSIS [None]
  - HEPATIC STEATOSIS [None]
  - HOT FLUSH [None]
  - INITIAL INSOMNIA [None]
  - MUSCLE SPASMS [None]
